FAERS Safety Report 18388697 (Version 5)
Quarter: 2024Q3

REPORT INFORMATION
  Report Type: Report from Study
  Country: US (occurrence: US)
  Receive Date: 20201015
  Receipt Date: 20240912
  Transmission Date: 20241017
  Serious: Yes (Other)
  Sender: GILEAD
  Company Number: US-GILEAD-2020-0498797

PATIENT
  Age: 65 Year
  Sex: Male

DRUGS (10)
  1. AXICABTAGENE CILOLEUCEL [Suspect]
     Active Substance: AXICABTAGENE CILOLEUCEL
     Indication: Non-Hodgkin^s lymphoma
     Route: 065
  2. AXICABTAGENE CILOLEUCEL [Suspect]
     Active Substance: AXICABTAGENE CILOLEUCEL
     Indication: Diffuse large B-cell lymphoma
  3. RITUXIMAB [Concomitant]
     Active Substance: RITUXIMAB
     Indication: Chemotherapy
  4. IBRUTINIB [Concomitant]
     Active Substance: IBRUTINIB
     Indication: Chemotherapy
  5. BENDAMUSTINE [Concomitant]
     Active Substance: BENDAMUSTINE
     Indication: Chemotherapy
  6. DEXAMETHASONE [Concomitant]
     Active Substance: DEXAMETHASONE
  7. CISPLATIN [Concomitant]
     Active Substance: CISPLATIN
     Indication: Chemotherapy
  8. CYTARABINE [Concomitant]
     Active Substance: CYTARABINE
     Indication: Chemotherapy
  9. CYCLOPHOSPHAMIDE [Concomitant]
     Active Substance: CYCLOPHOSPHAMIDE
     Indication: Bone marrow conditioning regimen
  10. FLUDARABINE [Concomitant]
     Active Substance: FLUDARABINE PHOSPHATE
     Indication: Bone marrow conditioning regimen

REACTIONS (1)
  - Acute myeloid leukaemia [Unknown]
